FAERS Safety Report 10587192 (Version 1)
Quarter: 2014Q4

REPORT INFORMATION
  Report Type: Spontaneous
  Country: DE (occurrence: DE)
  Receive Date: 20141117
  Receipt Date: 20141117
  Transmission Date: 20150529
  Serious: Yes (Death, Life-Threatening, Hospitalization)
  Sender: FDA-Public Use
  Company Number: DE-JNJFOC-20141107702

PATIENT
  Age: 69 Year
  Sex: Female
  Weight: 80 kg

DRUGS (4)
  1. XARELTO [Suspect]
     Active Substance: RIVAROXABAN
     Indication: EMBOLISM VENOUS
     Route: 048
     Dates: start: 20140924, end: 20141020
  2. METHOTREXATE (METHOTREXATE SODIUM) [Concomitant]
     Active Substance: METHOTREXATE SODIUM
     Indication: POLYARTHRITIS
     Route: 058
     Dates: start: 2004
  3. XARELTO [Suspect]
     Active Substance: RIVAROXABAN
     Indication: PULMONARY EMBOLISM
     Route: 048
     Dates: start: 20140924, end: 20141020
  4. PREDNISOLON [Concomitant]
     Active Substance: PREDNISOLONE
     Indication: POLYARTHRITIS
     Route: 048
     Dates: start: 2004

REACTIONS (7)
  - Disseminated intravascular coagulation [Fatal]
  - Multi-organ failure [Fatal]
  - Septic shock [Fatal]
  - Escherichia sepsis [Fatal]
  - Eosinophilia [Fatal]
  - Agranulocytosis [Fatal]
  - Thrombocytopenia [Fatal]

NARRATIVE: CASE EVENT DATE: 20141020
